FAERS Safety Report 14791189 (Version 2)
Quarter: 2018Q2

REPORT INFORMATION
  Report Type: Spontaneous
  Country: IN (occurrence: IN)
  Receive Date: 20180423
  Receipt Date: 20180502
  Transmission Date: 20180711
  Serious: Yes (Life-Threatening, Hospitalization, Other)
  Sender: FDA-Public Use
  Company Number: IN-GLENMARK PHARMACEUTICALS-2018GMK034605

PATIENT
  Age: 65 Year
  Sex: Male

DRUGS (3)
  1. LIDOCAINE. [Suspect]
     Active Substance: LIDOCAINE
     Dosage: 9 ML, (9 ML OF 2 % LIDOCAINE), SPRAY-AS-YOU-GO METHOD)
     Route: 065
  2. LIDOCAINE. [Suspect]
     Active Substance: LIDOCAINE
     Indication: ANAESTHESIA
     Dosage: 5 ML, (5ML OF 2% GEL: 100 MG INTRANASALLY)
     Route: 045
  3. LIDOCAINE. [Suspect]
     Active Substance: LIDOCAINE
     Dosage: 50 MG, (5 SPRAYS OF 10 % LIDOCAINE TO OROPHARYNX: 50 MG)
     Route: 065

REACTIONS (4)
  - Ventricular tachycardia [Recovered/Resolved]
  - Cardiotoxicity [Recovered/Resolved]
  - Circulatory collapse [Recovered/Resolved]
  - Toxicity to various agents [Recovered/Resolved]
